FAERS Safety Report 5491210-3 (Version None)
Quarter: 2007Q4

REPORT INFORMATION
  Report Type: 
  Country: None (occurrence: None)
  Receive Date: 20071019
  Receipt Date: 20071009
  Transmission Date: 20080405
  Serious: Yes (Hospitalization, Other)
  Sender: FDA-Public Use
  Company Number: US-PFIZER INC-2007086107

PATIENT
  Sex: Female
  Weight: 58.181 kg

DRUGS (13)
  1. CHANTIX [Suspect]
     Indication: EX-SMOKER
  2. PHENOBARBITONE [Interacting]
     Indication: EPILEPSY
     Dosage: TEXT:EVERYDAY TDD:180MG
  3. PHENOBARBITONE [Interacting]
     Indication: CONVULSION
  4. DYAZIDE [Concomitant]
  5. NEXIUM [Concomitant]
  6. SYNTHROID [Concomitant]
  7. IMITREX [Concomitant]
  8. CALCIUM [Concomitant]
  9. ALL OTHER THERAPEUTIC PRODUCTS [Concomitant]
  10. VITAMIN E [Concomitant]
  11. ACETYLSALICYLIC ACID [Concomitant]
  12. VITAMIN CAP [Concomitant]
  13. ALL OTHER THERAPEUTIC PRODUCTS [Concomitant]

REACTIONS (3)
  - ANTICONVULSANT DRUG LEVEL BELOW THERAPEUTIC [None]
  - CONVULSION [None]
  - DRUG INTERACTION [None]
